FAERS Safety Report 4313166-9 (Version None)
Quarter: 2004Q1

REPORT INFORMATION
  Report Type: 
  Country: None (occurrence: None)
  Receive Date: 20040304
  Receipt Date: 20040218
  Transmission Date: 20041129
  Serious: Yes (Hospitalization)
  Sender: FDA-Public Use
  Company Number: JP_040202667

PATIENT

DRUGS (1)
  1. GEMZAR [Suspect]
     Indication: OVARIAN CANCER
     Dosage: 1000 MG/M2 OTHER
     Route: 050
     Dates: start: 20040126

REACTIONS (2)
  - ANURIA [None]
  - RENAL DISORDER [None]
